FAERS Safety Report 10537116 (Version 2)
Quarter: 2014Q4

REPORT INFORMATION
  Report Type: Spontaneous
  Country: FR (occurrence: FR)
  Receive Date: 20141022
  Receipt Date: 20141113
  Transmission Date: 20150529
  Serious: Yes (Hospitalization)
  Sender: FDA-Public Use
  Company Number: FR-MERCK-1410FRA009239

PATIENT
  Age: 59 Year
  Sex: Female

DRUGS (23)
  1. MEROPENEM ANHYDROUS [Suspect]
     Active Substance: MEROPENEM ANHYDROUS
     Dosage: TOTAL DAILY DOSE: UNKNOWN
     Route: 042
     Dates: start: 20140327, end: 20140410
  2. PREVISCAN [Suspect]
     Active Substance: FLUINDIONE
     Dosage: 2.25 TABLETS, QD
     Route: 048
     Dates: start: 20140606, end: 20140609
  3. RIFADIN [Suspect]
     Active Substance: RIFAMPIN
     Indication: BACTERIAL SEPSIS
     Dosage: TOTAL DAILY DOSE: UNKNOWN
     Route: 065
     Dates: start: 20140310, end: 20140320
  4. HEPARIN SODIUM. [Suspect]
     Active Substance: HEPARIN SODIUM
     Dosage: TOTAL DAILY DOSE: UNKNOWN
     Route: 058
     Dates: start: 20140419, end: 20140610
  5. TARGOCID [Suspect]
     Active Substance: TEICOPLANIN
     Indication: BACTERIAL SEPSIS
     Dosage: TOTAL DAILY DOSE: UNKNOWN
     Route: 042
     Dates: start: 20140310, end: 20140320
  6. PREVISCAN [Suspect]
     Active Substance: FLUINDIONE
     Indication: ATRIAL FIBRILLATION
     Dosage: TOTAL DAILY DOSE: UNKNOWN
     Route: 048
     Dates: start: 20140301, end: 20140328
  7. MEROPENEM ANHYDROUS [Suspect]
     Active Substance: MEROPENEM ANHYDROUS
     Indication: BACTERIAL SEPSIS
     Dosage: TOTAL DAILY DOSE: UNKNOWN
     Route: 042
     Dates: start: 20140213, end: 20140306
  8. PREVISCAN [Suspect]
     Active Substance: FLUINDIONE
     Dosage: TOTAL DAILY DOSE: UNKNOWN
     Route: 048
     Dates: start: 20140401, end: 20140414
  9. PREVISCAN [Suspect]
     Active Substance: FLUINDIONE
     Dosage: 2 TABLETS, QD
     Route: 048
     Dates: start: 20140610, end: 20140611
  10. HEPARIN SODIUM. [Suspect]
     Active Substance: HEPARIN SODIUM
     Dosage: TOTAL DAILY DOSE: UNKNOWN
     Route: 058
     Dates: start: 20140209, end: 20140304
  11. CANCIDAS [Suspect]
     Active Substance: CASPOFUNGIN ACETATE
     Indication: BACTERIAL SEPSIS
     Dosage: TOTAL DAILY DOSE: UNKNOWN
     Route: 042
     Dates: start: 20140310, end: 20140320
  12. PREVISCAN [Suspect]
     Active Substance: FLUINDIONE
     Dosage: 1.75 TABLETS, QD
     Route: 048
     Dates: start: 20140612, end: 20140616
  13. ZYVOXID [Suspect]
     Active Substance: LINEZOLID
     Dosage: TOTAL DAILY DOSE: UNKNOWN
     Route: 042
     Dates: start: 20140327, end: 20140410
  14. CIFLOX (CIPROFLOXACIN HYDROCHLORIDE) [Suspect]
     Active Substance: CIPROFLOXACIN HYDROCHLORIDE
     Indication: BACTERIAL SEPSIS
     Dosage: TOTAL DAILY DOSE: UNKNOWN
     Route: 042
     Dates: start: 20140213, end: 20140306
  15. PREVISCAN [Suspect]
     Active Substance: FLUINDIONE
     Dosage: 1 TABLET PER DAY, THEN 1.25 TABLET PER DAY
     Route: 048
     Dates: start: 20140527, end: 20140603
  16. PREVISCAN [Suspect]
     Active Substance: FLUINDIONE
     Dosage: 2 TABLETS, QD
     Route: 048
     Dates: start: 20140604, end: 20140605
  17. CANCIDAS [Suspect]
     Active Substance: CASPOFUNGIN ACETATE
     Dosage: TOTAL DAILY DOSE: UNKNOWN
     Route: 042
     Dates: start: 20140327, end: 20140408
  18. CIFLOX (CIPROFLOXACIN HYDROCHLORIDE) [Suspect]
     Active Substance: CIPROFLOXACIN HYDROCHLORIDE
     Dosage: TOTAL DAILY DOSE:UNKNOWN
     Route: 042
     Dates: start: 20140602, end: 20140615
  19. MEROPENEM ANHYDROUS [Suspect]
     Active Substance: MEROPENEM ANHYDROUS
     Dosage: TOTAL DAILY DOSE: UNKNOWN
     Route: 042
     Dates: start: 20140310, end: 20140320
  20. MEROPENEM ANHYDROUS [Suspect]
     Active Substance: MEROPENEM ANHYDROUS
     Dosage: TOTAL DAILY DOSE: UNKNOWN
     Route: 042
     Dates: start: 20140501, end: 20140515
  21. MEROPENEM ANHYDROUS [Suspect]
     Active Substance: MEROPENEM ANHYDROUS
     Dosage: TOTAL DAILY DOSE: UNKNOWN
     Route: 042
     Dates: start: 20140531, end: 20140615
  22. ZYVOXID [Suspect]
     Active Substance: LINEZOLID
     Indication: BACTERIAL SEPSIS
     Dosage: TOTAL DAILY DOSE: UNKNOWN
     Route: 042
     Dates: start: 20140208, end: 20140306
  23. ZYVOXID [Suspect]
     Active Substance: LINEZOLID
     Dosage: TOTAL DAILY DOSE: UNKNOWN
     Route: 042
     Dates: start: 20140506, end: 20140527

REACTIONS (2)
  - Dermatitis exfoliative [Recovered/Resolved]
  - Urticaria [Recovered/Resolved]

NARRATIVE: CASE EVENT DATE: 20140303
